FAERS Safety Report 8515394-5 (Version None)
Quarter: 2012Q3

REPORT INFORMATION
  Report Type: 
  Country: None (occurrence: None)
  Receive Date: 20120717
  Receipt Date: 20120703
  Transmission Date: 20120928
  Serious: Yes (Life-Threatening, Other)
  Sender: FDA-Public Use
  Company Number: US-ELI_LILLY_AND_COMPANY-US201207001675

PATIENT

DRUGS (8)
  1. CYMBALTA [Suspect]
     Indication: BIPOLAR DISORDER
     Dosage: UNK
     Route: 064
     Dates: start: 20070101, end: 20080101
  2. GEODON [Concomitant]
  3. DEPAKOTE [Concomitant]
  4. DEPAKOTE [Concomitant]
     Indication: MIGRAINE
  5. CYMBALTA [Suspect]
     Dosage: UNK
     Route: 064
     Dates: start: 20070101, end: 20080101
  6. PRENATAL VITAMINS                  /01549301/ [Concomitant]
  7. PRENATAL VITAMINS                  /01549301/ [Concomitant]
  8. GEODON [Concomitant]

REACTIONS (15)
  - NEONATAL RESPIRATORY DEPRESSION [None]
  - MENTAL DISORDER [None]
  - AUTISM [None]
  - APGAR SCORE LOW [None]
  - CRYING [None]
  - PSYCHOMOTOR HYPERACTIVITY [None]
  - DEVELOPMENTAL DELAY [None]
  - HYPOTONIA NEONATAL [None]
  - CYANOSIS NEONATAL [None]
  - SMALL FOR DATES BABY [None]
  - OFF LABEL USE [None]
  - AGGRESSION [None]
  - DISTURBANCE IN ATTENTION [None]
  - SPEECH DISORDER DEVELOPMENTAL [None]
  - MIDDLE INSOMNIA [None]
